FAERS Safety Report 8490436-4 (Version None)
Quarter: 2012Q3

REPORT INFORMATION
  Report Type: 
  Country: None (occurrence: None)
  Receive Date: 20120705
  Receipt Date: 20120626
  Transmission Date: 20120928
  Serious: Yes (Other)
  Sender: FDA-Public Use
  Company Number: US-CELGENEUS-163-20785-12063710

PATIENT
  Sex: Female
  Weight: 65.376 kg

DRUGS (3)
  1. DECADRON [Concomitant]
     Route: 065
  2. LASIX [Concomitant]
     Route: 065
  3. THALOMID [Suspect]
     Indication: MULTIPLE MYELOMA
     Dosage: 200 MILLIGRAM
     Route: 048
     Dates: start: 20120504, end: 20120601

REACTIONS (3)
  - DISEASE PROGRESSION [None]
  - DRUG INEFFECTIVE [None]
  - ADVERSE EVENT [None]
